FAERS Safety Report 8642395 (Version 4)
Quarter: 2013Q1

REPORT INFORMATION
  Report Type: Report from Study
  Country: CA (occurrence: CA)
  Receive Date: 20120628
  Receipt Date: 20130124
  Transmission Date: 20140127
  Serious: Yes (Death, Life-Threatening, Other)
  Sender: FDA-Public Use
  Company Number: CA-ROCHE-1077173

PATIENT
  Sex: Male

DRUGS (7)
  1. VEMURAFENIB [Suspect]
     Indication: METASTATIC MALIGNANT MELANOMA
     Route: 048
     Dates: start: 201205, end: 20120518
  2. VEMURAFENIB [Suspect]
     Dosage: DOSE REDUCED
     Route: 048
     Dates: start: 20120529, end: 2012
  3. VEMURAFENIB [Suspect]
     Route: 048
     Dates: start: 20120505
  4. VEMURAFENIB [Suspect]
     Dosage: DOSE REDUCED
     Route: 048
     Dates: end: 20120727
  5. LORAZEPAM [Concomitant]
     Indication: METASTATIC MALIGNANT MELANOMA
     Route: 065
  6. HYDROMORPHONE [Concomitant]
     Route: 065
  7. DACARBAZINE [Concomitant]

REACTIONS (9)
  - Disease progression [Fatal]
  - Hepatotoxicity [Unknown]
  - Rash [Unknown]
  - Blood bilirubin increased [Unknown]
  - Arthralgia [Recovered/Resolved]
  - Local swelling [Recovered/Resolved]
  - Pharyngeal erythema [Recovered/Resolved]
  - Rash [Recovered/Resolved]
  - Hepatitis [Unknown]
